FAERS Safety Report 18931451 (Version 2)
Quarter: 2021Q1

REPORT INFORMATION
  Report Type: Spontaneous
  Country: US (occurrence: US)
  Receive Date: 20210224
  Receipt Date: 20210330
  Transmission Date: 20210420
  Serious: No
  Sender: FDA-Public Use
  Company Number: US-SA-2021SA061119

PATIENT
  Sex: Female

DRUGS (1)
  1. DUPIXENT [Suspect]
     Active Substance: DUPILUMAB
     Indication: ACTINIC KERATOSIS
     Route: 058

REACTIONS (5)
  - Ocular hyperaemia [Recovered/Resolved]
  - Oropharyngeal pain [Unknown]
  - Therapeutic response decreased [Unknown]
  - Feeling abnormal [Unknown]
  - Product use in unapproved indication [Unknown]
